FAERS Safety Report 8168061-4 (Version None)
Quarter: 2012Q1

REPORT INFORMATION
  Report Type: 
  Country: None (occurrence: None)
  Receive Date: 20120227
  Receipt Date: 20120217
  Transmission Date: 20120608
  Serious: Yes (Other)
  Sender: FDA-Public Use
  Company Number: PHEH2012US004260

PATIENT
  Age: 63 Year
  Sex: Female

DRUGS (3)
  1. RECLAST [Suspect]
     Dosage: UNK UKN, UNK
     Route: 042
  2. RECLAST [Suspect]
     Dosage: UNK UKN, UNK
     Route: 042
  3. RECLAST [Suspect]
     Dosage: UNK UKN, UNK
     Route: 042
     Dates: start: 20111011

REACTIONS (3)
  - HAEMOCHROMATOSIS [None]
  - ARTHRALGIA [None]
  - OSTEOARTHRITIS [None]
